FAERS Safety Report 24117068 (Version 1)
Quarter: 2024Q3

REPORT INFORMATION
  Report Type: Spontaneous
  Country: US (occurrence: None)
  Receive Date: 20240722
  Receipt Date: 20240722
  Transmission Date: 20241016
  Serious: No
  Sender: ASTRAZENECA
  Company Number: 2024A159319

PATIENT
  Sex: Male

DRUGS (2)
  1. SYMBICORT [Suspect]
     Active Substance: BUDESONIDE\FORMOTEROL FUMARATE DIHYDRATE
     Dosage: UNKNOWN UNKNOWN
     Route: 055
  2. BREZTRI [Suspect]
     Active Substance: BUDESONIDE\FORMOTEROL\GLYCOPYRROLATE
     Indication: Chronic obstructive pulmonary disease
     Route: 055

REACTIONS (8)
  - Dyspnoea exertional [Unknown]
  - Obstructive airways disorder [Unknown]
  - Memory impairment [Unknown]
  - Chest discomfort [Unknown]
  - Device use issue [Unknown]
  - Therapeutic product effect delayed [Unknown]
  - Wrong technique in device usage process [Unknown]
  - Device delivery system issue [Unknown]
